FAERS Safety Report 13697406 (Version 1)
Quarter: 2017Q2

REPORT INFORMATION
  Report Type: Spontaneous
  Country: US (occurrence: US)
  Receive Date: 20170628
  Receipt Date: 20170628
  Transmission Date: 20170830
  Serious: Yes (Other)
  Sender: FDA-Public Use
  Company Number: None

PATIENT
  Age: 68 Year
  Sex: Female
  Weight: 67.59 kg

DRUGS (9)
  1. ASPIRIN. [Concomitant]
     Active Substance: ASPIRIN
  2. EXEMESTANE 25 MG GREENSTONE [Suspect]
     Active Substance: EXEMESTANE
     Indication: OESTROGEN RECEPTOR POSITIVE BREAST CANCER
     Dosage: ?          QUANTITY:L OUCH?) (0+1 MAM?;?
     Route: 048
     Dates: start: 20160909, end: 20170606
  3. DETROL [Concomitant]
     Active Substance: TOLTERODINE TARTRATE
  4. LEVOTHYROXINE. [Concomitant]
     Active Substance: LEVOTHYROXINE
  5. GLUCOSAMINE-CHONDROITIN [Concomitant]
     Active Substance: CHONDROITIN SULFATE (BOVINE)\GLUCOSAMINE SULFATE
  6. CALCIUM [Concomitant]
     Active Substance: CALCIUM
  7. VITAMIN D [Concomitant]
     Active Substance: CHOLECALCIFEROL
  8. SIMVASTATIN. [Concomitant]
     Active Substance: SIMVASTATIN
  9. LORATADINE. [Concomitant]
     Active Substance: LORATADINE

REACTIONS (12)
  - Eyelid oedema [None]
  - Arthralgia [None]
  - Trigger finger [None]
  - Vision blurred [None]
  - Pain [None]
  - Balance disorder [None]
  - Fatigue [None]
  - Joint swelling [None]
  - Musculoskeletal pain [None]
  - Hot flush [None]
  - Peripheral swelling [None]
  - Hunger [None]

NARRATIVE: CASE EVENT DATE: 20170511
